FAERS Safety Report 11175519 (Version 1)
Quarter: 2015Q2

REPORT INFORMATION
  Report Type: Spontaneous
  Country: JP (occurrence: JP)
  Receive Date: 20150609
  Receipt Date: 20150609
  Transmission Date: 20150821
  Serious: Yes (Death)
  Sender: FDA-Public Use
  Company Number: JP-TAKEDA-2015TUS007456

PATIENT
  Age: 67 Year
  Sex: Male
  Weight: 59 kg

DRUGS (1)
  1. FEBURIC [Suspect]
     Active Substance: FEBUXOSTAT
     Indication: HYPERURICAEMIA
     Dosage: 40 MG, QD
     Route: 048
     Dates: start: 20141006

REACTIONS (1)
  - Death [Fatal]

NARRATIVE: CASE EVENT DATE: 20150603
